FAERS Safety Report 7921880-9 (Version None)
Quarter: 2011Q4

REPORT INFORMATION
  Report Type: 
  Country: None (occurrence: None)
  Receive Date: 20111117
  Receipt Date: 20111108
  Transmission Date: 20120403
  Serious: Yes (Hospitalization)
  Sender: FDA-Public Use
  Company Number: US-ASTRAZENECA-2009SE26935

PATIENT
  Age: 71 Year
  Sex: Female

DRUGS (3)
  1. SYMBICORT [Suspect]
     Indication: ASTHMA
     Dosage: 160/4.5 MCG, 2 PUFFS BID
     Route: 055
  2. SYMBICORT [Suspect]
     Dosage: 160/4.5 MCG, 1 PUFFS BID
     Route: 055
  3. ANESTHESIA [Suspect]

REACTIONS (4)
  - COUGH [None]
  - CHEST PAIN [None]
  - PULMONARY CONGESTION [None]
  - INCORRECT DOSE ADMINISTERED [None]
